FAERS Safety Report 9296807 (Version 1)
Quarter: 2013Q2

REPORT INFORMATION
  Report Type: Spontaneous
  Country: US (occurrence: US)
  Receive Date: 20130517
  Receipt Date: 20130517
  Transmission Date: 20140414
  Serious: No
  Sender: FDA-Public Use
  Company Number: US-009507513-1305USA004983

PATIENT
  Age: 16 Year
  Sex: Female

DRUGS (4)
  1. DULERA [Suspect]
     Indication: ASTHMA
     Dosage: UNK
     Dates: end: 201304
  2. EXCEDRIN (ACETAMINOPHEN (+) CAFFEINE) [Concomitant]
  3. SUDAFED [Concomitant]
  4. XOPENEX [Concomitant]

REACTIONS (4)
  - Muscle rigidity [Unknown]
  - Vision blurred [Unknown]
  - Tachycardia [Unknown]
  - Dyspnoea [Unknown]
